FAERS Safety Report 14855852 (Version 1)
Quarter: 2018Q2

REPORT INFORMATION
  Report Type: Spontaneous
  Country: JP (occurrence: JP)
  Receive Date: 20180507
  Receipt Date: 20180507
  Transmission Date: 20180711
  Serious: Yes (Other)
  Sender: FDA-Public Use
  Company Number: JP-PFIZER INC-2018179688

PATIENT

DRUGS (1)
  1. ZYVOX [Suspect]
     Active Substance: LINEZOLID
     Dosage: 600 MG, 1X/DAY

REACTIONS (4)
  - Renal impairment [Unknown]
  - Platelet count decreased [Unknown]
  - Bone marrow failure [Unknown]
  - Red blood cell count decreased [Unknown]
